FAERS Safety Report 5110577-9 (Version None)
Quarter: 2006Q3

REPORT INFORMATION
  Report Type: 
  Country: None (occurrence: None)
  Receive Date: 20060915
  Receipt Date: 20060908
  Transmission Date: 20061208
  Serious: Yes (Death)
  Sender: FDA-Public Use
  Company Number: HQWYE502611SEP06

PATIENT
  Age: 76 Year
  Sex: Male

DRUGS (2)
  1. MYLOTARG [Suspect]
     Indication: ACUTE MYELOID LEUKAEMIA
     Dosage: 6 MG/M^2 1X PER 1 DAY, INTRAVENOUS
     Route: 042
     Dates: start: 20060815, end: 20060815
  2. CYTARABINE [Suspect]
     Indication: ACUTE MYELOID LEUKAEMIA
     Dosage: 100MG/M^2 CONTINOUS INFUSION, INTRAVENOUS
     Route: 042
     Dates: start: 20060815, end: 20060822

REACTIONS (8)
  - ABDOMINAL DISTENSION [None]
  - ASCITES [None]
  - BACTERAEMIA [None]
  - BLOOD BILIRUBIN INCREASED [None]
  - BLOOD PRODUCT TRANSFUSION DEPENDENT [None]
  - CLOSTRIDIUM DIFFICILE COLITIS [None]
  - HEPATOMEGALY [None]
  - JAUNDICE [None]
